FAERS Safety Report 6788769-2 (Version None)
Quarter: 2010Q2

REPORT INFORMATION
  Report Type: 
  Country: None (occurrence: None)
  Receive Date: 20100623
  Receipt Date: 20080527
  Transmission Date: 20101027
  Serious: Yes (Other)
  Sender: FDA-Public Use
  Company Number: US-PFIZER INC-2008033537

PATIENT
  Age: 30 Year
  Sex: Female

DRUGS (3)
  1. GEODON [Suspect]
     Indication: PSYCHOTIC DISORDER
     Dates: start: 20071201, end: 20080201
  2. TRILAFON [Concomitant]
  3. SEROQUEL [Concomitant]

REACTIONS (1)
  - TARDIVE DYSKINESIA [None]
